FAERS Safety Report 25231196 (Version 2)
Quarter: 2025Q2

REPORT INFORMATION
  Report Type: Report from Study
  Country: US (occurrence: US)
  Receive Date: 20250423
  Receipt Date: 20250502
  Transmission Date: 20250717
  Serious: No
  Sender: ABBVIE
  Company Number: US-ABBVIE-6237134

PATIENT
  Sex: Female

DRUGS (1)
  1. RESTASIS [Suspect]
     Active Substance: CYCLOSPORINE
     Indication: Product used for unknown indication
     Dosage: ONE DROP IN EACH EYE TWICE A DAY, STRENGTH: 0.5MG/ML
     Route: 047

REACTIONS (3)
  - Accidental exposure to product [Not Recovered/Not Resolved]
  - Unevaluable event [Unknown]
  - Product use complaint [Not Recovered/Not Resolved]
